FAERS Safety Report 6840466-0 (Version None)
Quarter: 2010Q3

REPORT INFORMATION
  Report Type: 
  Country: None (occurrence: None)
  Receive Date: 20100714
  Receipt Date: 20100707
  Transmission Date: 20110219
  Serious: Yes (Hospitalization)
  Sender: FDA-Public Use
  Company Number: A0764145A

PATIENT
  Sex: Male
  Weight: 89.5 kg

DRUGS (2)
  1. AVANDIA [Suspect]
     Dosage: 2MG TWICE PER DAY
     Route: 048
     Dates: start: 19990101, end: 20070101
  2. GLARGINE [Concomitant]
     Dates: start: 20030101

REACTIONS (1)
  - HYPOTENSION [None]
